FAERS Safety Report 7920037-5 (Version None)
Quarter: 2011Q4

REPORT INFORMATION
  Report Type: 
  Country: None (occurrence: None)
  Receive Date: 20111115
  Receipt Date: 20111101
  Transmission Date: 20120403
  Serious: Yes (Hospitalization, Congenital Anomaly)
  Sender: FDA-Public Use
  Company Number: DSA_47439_2011

PATIENT
  Sex: Male

DRUGS (1)
  1. WELLBUTRIN [Suspect]
     Indication: PRODUCT USED FOR UNKNOWN INDICATION
     Dosage: (DF TRANSPLACENTAL)
     Route: 064

REACTIONS (45)
  - ANXIETY [None]
  - HEART DISEASE CONGENITAL [None]
  - CRYPTORCHISM [None]
  - NASAL SEPTUM DISORDER [None]
  - ATRIAL SEPTAL DEFECT [None]
  - GASTROINTESTINAL HAEMORRHAGE [None]
  - GASTROOESOPHAGEAL REFLUX DISEASE [None]
  - MATERNAL DRUGS AFFECTING FOETUS [None]
  - GASTROSTOMY [None]
  - PATENT DUCTUS ARTERIOSUS [None]
  - DEAFNESS [None]
  - SLEEP APNOEA SYNDROME [None]
  - ANISOMETROPIA [None]
  - AUTISM SPECTRUM DISORDER [None]
  - PAIN [None]
  - DYSPHAGIA [None]
  - COLITIS [None]
  - ECTOPIC KIDNEY [None]
  - SCAR [None]
  - SURGERY [None]
  - HYPERTELORISM OF ORBIT [None]
  - EAR CANAL STENOSIS [None]
  - CONSTIPATION [None]
  - DEVELOPMENTAL DELAY [None]
  - FOETAL GROWTH RESTRICTION [None]
  - COUGH [None]
  - BODY DYSMORPHIC DISORDER [None]
  - MENTALLY LATE DEVELOPER [None]
  - APGAR SCORE LOW [None]
  - HYPOTONIA [None]
  - MICROPENIS [None]
  - SPEECH DISORDER DEVELOPMENTAL [None]
  - EMOTIONAL DISORDER [None]
  - PREMATURE BABY [None]
  - FAILURE TO THRIVE [None]
  - DELAYED FONTANELLE CLOSURE [None]
  - OTITIS MEDIA [None]
  - FALLOT'S TETRALOGY [None]
  - RESPIRATORY FAILURE [None]
  - GASTRIC VOLVULUS [None]
  - DEHYDRATION [None]
  - CARDIAC FAILURE CONGESTIVE [None]
  - AUTISM [None]
  - PNEUMONIA [None]
  - ANAEMIA [None]
